FAERS Safety Report 5099447-2 (Version None)
Quarter: 2006Q3

REPORT INFORMATION
  Report Type: 
  Country: None (occurrence: None)
  Receive Date: 20060908
  Receipt Date: 20060901
  Transmission Date: 20061208
  Serious: Yes (Hospitalization)
  Sender: FDA-Public Use
  Company Number: US-BRISTOL-MYERS SQUIBB COMPANY-13496351

PATIENT
  Age: 31 Year
  Sex: Female

DRUGS (3)
  1. STAVUDINE [Suspect]
     Indication: HIV INFECTION
     Dates: start: 20040301
  2. NEVIRAPINE [Suspect]
     Indication: HIV INFECTION
     Dates: start: 20040301, end: 20040101
  3. LAMIVUDINE [Suspect]
     Indication: HIV INFECTION
     Dates: start: 20040301

REACTIONS (1)
  - STEVENS-JOHNSON SYNDROME [None]
